FAERS Safety Report 6957430-3 (Version None)
Quarter: 2010Q3

REPORT INFORMATION
  Report Type: 
  Country: None (occurrence: None)
  Receive Date: 20100826
  Receipt Date: 20100802
  Transmission Date: 20110219
  Serious: Yes (Other)
  Sender: FDA-Public Use
  Company Number: 2010GW000612

PATIENT
  Age: 56 Year
  Sex: Female

DRUGS (1)
  1. IMIQUIMOD [Suspect]
     Indication: LICHENOID KERATOSIS
     Dosage: 5 PCT;QD;TOP
     Route: 061

REACTIONS (15)
  - APPLICATION SITE ERYTHEMA [None]
  - APPLICATION SITE RASH [None]
  - APPLICATION SITE REACTION [None]
  - ARTHRALGIA [None]
  - AUTOIMMUNE DISORDER [None]
  - CUTANEOUS LUPUS ERYTHEMATOSUS [None]
  - ERYTHEMA [None]
  - EXFOLIATIVE RASH [None]
  - HERPES ZOSTER [None]
  - MYALGIA [None]
  - RASH [None]
  - RETINITIS [None]
  - SKIN ATROPHY [None]
  - SKIN LESION [None]
  - VISUAL ACUITY REDUCED [None]
